FAERS Safety Report 11543003 (Version 1)
Quarter: 2015Q3

REPORT INFORMATION
  Report Type: Spontaneous
  Country: US (occurrence: US)
  Receive Date: 20150903
  Receipt Date: 20150903
  Transmission Date: 20151125
  Serious: Yes (Other)
  Sender: FDA-Public Use
  Company Number: US-ELI_LILLY_AND_COMPANY-US201205006477

PATIENT
  Age: 72 Year
  Sex: Female

DRUGS (3)
  1. HUMALOG [Suspect]
     Active Substance: INSULIN LISPRO
     Indication: TYPE 2 DIABETES MELLITUS
     Dosage: 30 TO 32 U, UNKNOWN
     Dates: start: 2011
  2. HUMALOG [Suspect]
     Active Substance: INSULIN LISPRO
     Dosage: 30 TO 32 U, UNKNOWN
     Dates: start: 2011
  3. JANUVIA [Concomitant]
     Active Substance: SITAGLIPTIN PHOSPHATE
     Dosage: UNK

REACTIONS (12)
  - Incorrect dose administered [Unknown]
  - Arthropathy [Unknown]
  - Mobility decreased [Recovered/Resolved]
  - Venous injury [Unknown]
  - Hyperhidrosis [Recovered/Resolved]
  - Blood glucose decreased [Unknown]
  - Aphasia [Recovered/Resolved]
  - Tremor [Recovered/Resolved]
  - Injection site pain [Unknown]
  - Vision blurred [Recovered/Resolved]
  - Incorrect product storage [Unknown]
  - Injection site bruising [Unknown]

NARRATIVE: CASE EVENT DATE: 2011
